FAERS Safety Report 7581301-5 (Version None)
Quarter: 2011Q2

REPORT INFORMATION
  Report Type: 
  Country: None (occurrence: None)
  Receive Date: 20110629
  Receipt Date: 20110627
  Transmission Date: 20111010
  Serious: Yes (Hospitalization, Other)
  Sender: FDA-Public Use
  Company Number: US-TEVA-283082USA

PATIENT
  Age: 46 Year
  Sex: Female

DRUGS (4)
  1. CITALOPRAM HYDROBROMIDE [Suspect]
  2. INTERFERON BETA NOS [Suspect]
     Indication: MULTIPLE SCLEROSIS
     Dosage: 4.2857 MICROGRAM;
     Route: 030
     Dates: start: 19971101, end: 20070401
  3. COPAXONE [Suspect]
     Indication: MULTIPLE SCLEROSIS
     Route: 058
  4. TIZANIDINE HYDROCHLORIDE [Suspect]

REACTIONS (4)
  - HYPOTENSION [None]
  - SUICIDE ATTEMPT [None]
  - HEART RATE DECREASED [None]
  - OVERDOSE [None]
